FAERS Safety Report 24020760 (Version 2)
Quarter: 2024Q4

REPORT INFORMATION
  Report Type: Report from Study
  Country: DE (occurrence: DE)
  Receive Date: 20240627
  Receipt Date: 20241204
  Transmission Date: 20250115
  Serious: Yes (Hospitalization, Other)
  Sender: ABBVIE
  Company Number: DE-ABBVIE-5816196

PATIENT
  Age: 66 Year
  Sex: Male
  Weight: 75 kg

DRUGS (3)
  1. SKYRIZI [Suspect]
     Active Substance: RISANKIZUMAB-RZAA
     Indication: Psoriatic arthropathy
     Route: 058
     Dates: start: 20240228
  2. SKYRIZI [Suspect]
     Active Substance: RISANKIZUMAB-RZAA
     Indication: Psoriasis
  3. AMLODIPINE [Concomitant]
     Active Substance: AMLODIPINE BESYLATE
     Indication: Product used for unknown indication
     Dates: start: 202404

REACTIONS (11)
  - Cervical vertebral fracture [Recovered/Resolved]
  - Neck pain [Unknown]
  - Arterial injury [Recovered/Resolved]
  - Wound secretion [Recovered/Resolved]
  - Fall [Unknown]
  - Hypertension [Recovered/Resolved]
  - Joint ankylosis [Unknown]
  - Spondylolysis [Recovered/Resolved]
  - Vertebral artery stenosis [Unknown]
  - Spinal fusion acquired [Recovered/Resolved]
  - Spinal osteoarthritis [Unknown]

NARRATIVE: CASE EVENT DATE: 20240101
